FAERS Safety Report 18340371 (Version 1)
Quarter: 2020Q4

REPORT INFORMATION
  Report Type: Spontaneous
  Country: US (occurrence: US)
  Receive Date: 20201002
  Receipt Date: 20201002
  Transmission Date: 20210113
  Serious: No
  Sender: FDA-Public Use
  Company Number: US-NOVOPROD-747662

PATIENT
  Age: 48 Year
  Sex: Female
  Weight: 111.57 kg

DRUGS (1)
  1. MACRILEN [Suspect]
     Active Substance: MACIMORELIN
     Indication: BLOOD GROWTH HORMONE ABNORMAL
     Dosage: 60 MG
     Route: 048
     Dates: start: 20200811, end: 20200811

REACTIONS (1)
  - Product communication issue [Unknown]

NARRATIVE: CASE EVENT DATE: 20200811
